FAERS Safety Report 9410716 (Version 2)
Quarter: 2014Q2

REPORT INFORMATION
  Report Type: Report from Study
  Country: DE (occurrence: DE)
  Receive Date: 20130719
  Receipt Date: 20140411
  Transmission Date: 20141212
  Serious: Yes (Disabling, Other)
  Sender: FDA-Public Use
  Company Number: DE-MERCK-1211DEU005860

PATIENT
  Age: 57 Year
  Sex: Female
  Weight: 76 kg

DRUGS (10)
  1. BOCEPREVIR [Suspect]
     Indication: HEPATITIS C
     Dosage: 2400 MG, QD
     Route: 048
     Dates: start: 20120702, end: 20130506
  2. REBETOL [Suspect]
     Indication: HEPATITIS C
     Dosage: 1200 MG, QD
     Route: 048
     Dates: start: 20120604, end: 20120627
  3. REBETOL [Suspect]
     Dosage: 800 MG, QD
     Route: 048
     Dates: start: 20120627, end: 20120731
  4. REBETOL [Suspect]
     Dosage: 400 MG, QD
     Route: 048
     Dates: start: 20120731
  5. REBETOL [Suspect]
     Dosage: 2 DF, QAM
     Route: 048
     Dates: start: 20120903, end: 20120930
  6. REBETOL [Suspect]
     Dosage: 3 DF, QAM
     Route: 048
     Dates: start: 20121001
  7. REBETOL [Suspect]
     Dosage: 2 DF, BID
     Dates: start: 20121029
  8. PEGINTRON [Suspect]
     Indication: HEPATITIS C
     Dosage: 120 MICROGRAM, QW
     Route: 058
     Dates: start: 20120604, end: 20120930
  9. PEGINTRON [Suspect]
     Dosage: 100 MICROGRAM, QW
     Route: 058
     Dates: start: 20121001
  10. VIGIL [Concomitant]
     Indication: APNOEA
     Dosage: 100 MG, QD
     Route: 048
     Dates: start: 20120903

REACTIONS (8)
  - Anaemia [Recovered/Resolved]
  - Anaemia [Recovered/Resolved]
  - Weight decreased [Not Recovered/Not Resolved]
  - Neutropenia [Recovered/Resolved]
  - Neutropenia [Recovered/Resolved]
  - Thrombocytopenia [Not Recovered/Not Resolved]
  - Rash [Recovered/Resolved]
  - Rash [Recovered/Resolved]
